FAERS Safety Report 6348742-5 (Version None)
Quarter: 2009Q3

REPORT INFORMATION
  Report Type: 
  Country: None (occurrence: None)
  Receive Date: 20090911
  Receipt Date: 20090904
  Transmission Date: 20100115
  Serious: Yes (Other)
  Sender: FDA-Public Use
  Company Number: FR-BAYER-200931467GPV

PATIENT
  Age: 84 Year
  Sex: Female

DRUGS (1)
  1. CIFLOX [Suspect]
     Indication: URINARY TRACT INFECTION
     Route: 065
     Dates: start: 20090801

REACTIONS (2)
  - RETINAL ISCHAEMIA [None]
  - VISUAL ACUITY REDUCED [None]
